FAERS Safety Report 10022932 (Version 1)
Quarter: 2014Q1

REPORT INFORMATION
  Report Type: Spontaneous
  Country: US (occurrence: US)
  Receive Date: 20140319
  Receipt Date: 20140319
  Transmission Date: 20141002
  Serious: No
  Sender: FDA-Public Use
  Company Number: US-SA-2014SA015079

PATIENT
  Age: 64 Year
  Sex: Male

DRUGS (1)
  1. TRIAMCINOLONE ACETONIDE - WINTHROP [Suspect]
     Indication: NASAL POLYPS
     Dosage: 2 SPRAY EACH NOSTRIL
     Route: 065
     Dates: start: 2013

REACTIONS (2)
  - Therapeutic response decreased [Unknown]
  - Nasal congestion [Recovered/Resolved]
